FAERS Safety Report 5798579-0 (Version None)
Quarter: 2008Q3

REPORT INFORMATION
  Report Type: 
  Country: None (occurrence: None)
  Receive Date: 20080702
  Receipt Date: 20080630
  Transmission Date: 20090109
  Serious: Yes (Hospitalization, Disabling, Other)
  Sender: FDA-Public Use
  Company Number: US-GILEAD-2008-0017090

PATIENT
  Sex: Male

DRUGS (15)
  1. LETAIRIS [Suspect]
     Indication: PULMONARY HYPERTENSION
     Dosage: 5 MG QD
     Route: 048
     Dates: start: 20080609
  2. CARDIZEM [Concomitant]
  3. DIGOXIN [Concomitant]
  4. COUMADIN [Concomitant]
  5. ALBUTEROL [Concomitant]
  6. IPRATROPIUM BROMIDE [Concomitant]
  7. OXYCODONE HCL [Concomitant]
  8. PEPCID AC [Concomitant]
  9. SODIUM BICARBONATE [Concomitant]
  10. COLACE [Concomitant]
  11. SENOKOT [Concomitant]
  12. XANAX [Concomitant]
  13. ZOLOFT [Concomitant]
  14. ZOCOR [Concomitant]
  15. FERROUS SULFATE TAB [Concomitant]

REACTIONS (1)
  - ANAEMIA [None]
